FAERS Safety Report 6123021-X (Version None)
Quarter: 2009Q1

REPORT INFORMATION
  Report Type: 
  Country: None (occurrence: None)
  Receive Date: 20090318
  Receipt Date: 20090309
  Transmission Date: 20090719
  Serious: Yes (Hospitalization)
  Sender: FDA-Public Use
  Company Number: NZ-PURDUE-USA_2009_0037368

PATIENT
  Age: 56 Year
  Sex: Female

DRUGS (4)
  1. OXYCONTIN [Suspect]
     Indication: BACK PAIN
     Dosage: 10 MG, DAILY
     Route: 048
     Dates: start: 20070901
  2. OXYCONTIN [Suspect]
     Dosage: 20 MG, DAILY
     Route: 048
     Dates: start: 20071101
  3. AMITRIPTYLINE HCL [Concomitant]
     Indication: DRUG USE FOR UNKNOWN INDICATION
     Dosage: UNK, UNK
     Dates: start: 20040101
  4. AMITRIPTYLINE HCL [Concomitant]
     Dosage: 100 MG, NOCTE
     Route: 048
     Dates: start: 20060101, end: 20080901

REACTIONS (2)
  - ARTHRITIS BACTERIAL [None]
  - NEUTROPENIA [None]
